FAERS Safety Report 5798015-4 (Version None)
Quarter: 2008Q3

REPORT INFORMATION
  Report Type: 
  Country: None (occurrence: None)
  Receive Date: 20080702
  Receipt Date: 20080627
  Transmission Date: 20090109
  Serious: No
  Sender: FDA-Public Use
  Company Number: GB-PFIZER INC-2008043851

PATIENT
  Age: 79 Year
  Sex: Male

DRUGS (10)
  1. FLUCONAZOLE [Suspect]
  2. SIMVASTATIN [Suspect]
  3. THIAMINE [Concomitant]
  4. FOLATE [Concomitant]
  5. INSULIN [Concomitant]
     Indication: DIABETES MELLITUS
  6. LISINOPRIL [Concomitant]
     Indication: HYPERTENSION
  7. TERAZOSIN HCL [Concomitant]
  8. TOLTERODINE TARTRATE [Concomitant]
  9. GOSERELIN [Concomitant]
  10. MOMETASONE FUROATE [Concomitant]

REACTIONS (1)
  - NO ADVERSE EVENT [None]
